FAERS Safety Report 9009187 (Version 1)
Quarter: 2013Q1

REPORT INFORMATION
  Report Type: Spontaneous
  Country: US (occurrence: US)
  Receive Date: 20130111
  Receipt Date: 20130111
  Transmission Date: 20140127
  Serious: Yes (Hospitalization)
  Sender: FDA-Public Use
  Company Number: US-PFIZER INC-2013007920

PATIENT
  Age: 85 Year
  Sex: Female
  Weight: 69.8 kg

DRUGS (4)
  1. CELEBREX [Suspect]
     Indication: ARTHRITIS
     Dosage: 200 MG, DAILY
  2. COUMADIN [Suspect]
     Indication: ATRIAL FIBRILLATION
     Dosage: 2.5 MG, DAILY
  3. VENTOLIN [Concomitant]
     Indication: ASTHMA
     Dosage: UNK, AS NEEDED
  4. SYMBICORT [Concomitant]
     Indication: CHRONIC OBSTRUCTIVE PULMONARY DISEASE
     Dosage: 2 PUFFS DAILY

REACTIONS (4)
  - Vertigo [Unknown]
  - Asthenia [Unknown]
  - Bone lesion [Unknown]
  - Back disorder [Unknown]
